FAERS Safety Report 23440763 (Version 1)
Quarter: 2024Q1

REPORT INFORMATION
  Report Type: Spontaneous
  Country: SE (occurrence: SE)
  Receive Date: 20240125
  Receipt Date: 20240125
  Transmission Date: 20240409
  Serious: Yes (Other)
  Sender: FDA-Public Use
  Company Number: None

PATIENT
  Age: 58 Year
  Sex: Female

DRUGS (6)
  1. FERROUS GLYCINE SULFATE [Concomitant]
     Active Substance: FERROUS GLYCINE SULFATE
     Indication: Product used for unknown indication
     Dosage: 100 MG, QD
     Dates: start: 20221212
  2. OZEMPIC [Suspect]
     Active Substance: SEMAGLUTIDE
     Indication: Obesity
     Dosage: UNK
     Route: 058
     Dates: start: 20230207, end: 20230413
  3. CANDESARTAN [Concomitant]
     Active Substance: CANDESARTAN
     Indication: Product used for unknown indication
     Dosage: 8 MG, QD
     Dates: start: 20200623
  4. FUSIDIC ACID [Concomitant]
     Active Substance: FUSIDIC ACID
     Indication: Product used for unknown indication
     Dosage: 10 MG/G
     Dates: start: 20230124
  5. SAXENDA [Suspect]
     Active Substance: LIRAGLUTIDE
     Indication: Obesity
     Dosage: 0.6 MG
     Route: 058
     Dates: start: 20230119, end: 20230207
  6. FICORTRIL [HYDROCORTISONE ACETATE] [Concomitant]
     Indication: Product used for unknown indication
     Dosage: 5 MG
     Dates: start: 20230124

REACTIONS (3)
  - Poor quality sleep [Recovered/Resolved]
  - Anxiety [Recovered/Resolved]
  - Product use in unapproved indication [Recovered/Resolved]

NARRATIVE: CASE EVENT DATE: 20230125
